FAERS Safety Report 6742518-2 (Version None)
Quarter: 2010Q2

REPORT INFORMATION
  Report Type: 
  Country: None (occurrence: None)
  Receive Date: 20100526
  Receipt Date: 20100518
  Transmission Date: 20101027
  Serious: Yes (Hospitalization, Other)
  Sender: FDA-Public Use
  Company Number: US-GILEAD-2010-0027497

PATIENT
  Sex: Female
  Weight: 59.02 kg

DRUGS (13)
  1. LETAIRIS [Suspect]
     Indication: PULMONARY ARTERIAL HYPERTENSION
     Route: 048
     Dates: start: 20091210, end: 20100301
  2. LASIX [Concomitant]
  3. CARDIZEM [Concomitant]
  4. FLONASE [Concomitant]
  5. LANOXIN 0.5 [Concomitant]
  6. FERROUS SULFATE TAB [Concomitant]
  7. LOVASTATIN [Concomitant]
  8. VITAMIN C [Concomitant]
  9. FISH OIL [Concomitant]
  10. CALCIUM CARBONATE [Concomitant]
  11. COUMADIN [Concomitant]
  12. TRIAMCINOLONE [Concomitant]
  13. POTASSIUM CHLORIDE [Concomitant]

REACTIONS (2)
  - INTESTINAL OBSTRUCTION [None]
  - TRICUSPID VALVE REPLACEMENT [None]
